FAERS Safety Report 6735011-4 (Version None)
Quarter: 2010Q2

REPORT INFORMATION
  Report Type: 
  Country: None (occurrence: None)
  Receive Date: 20100520
  Receipt Date: 20100520
  Transmission Date: 20101027
  Serious: Yes (Hospitalization, Other)
  Sender: FDA-Public Use
  Company Number: None

PATIENT
  Age: 8 Month
  Sex: Female

DRUGS (1)
  1. INSULIN U10 [Suspect]
     Indication: DIABETES MELLITUS

REACTIONS (4)
  - DRUG NAME CONFUSION [None]
  - HYPOGLYCAEMIA [None]
  - INCORRECT DOSE ADMINISTERED [None]
  - MEDICATION ERROR [None]
